FAERS Safety Report 8865680 (Version 1)
Quarter: 2012Q4

REPORT INFORMATION
  Report Type: 
  Country: US (occurrence: US)
  Receive Date: 20121024
  Receipt Date: 20121024
  Transmission Date: 20130627
  Serious: No
  Sender: FDA-Public Use
  Company Number: US-AMGEN-USASP2012004296

PATIENT
  Sex: Male
  Weight: 74.83 kg

DRUGS (10)
  1. ENBREL [Suspect]
     Indication: PRODUCT USED FOR UNKNOWN INDICATION
     Dosage: 50 mg, qwk
     Route: 058
     Dates: start: 2002
  2. LIPITOR [Concomitant]
     Dosage: 10 mg, UNK
  3. ZETIA [Concomitant]
     Dosage: 10 mg, UNK
  4. MICARDIS [Concomitant]
     Dosage: 80 mg, UNK
  5. TEKTURNA [Concomitant]
     Dosage: 300 mg, UNK
  6. NORVASC [Concomitant]
     Dosage: 5 mg, UNK
  7. COREG [Concomitant]
     Dosage: 25 mg, UNK
  8. EFFEXOR [Concomitant]
     Dosage: 25 mg, UNK
  9. IMIPRAMIN [Concomitant]
     Dosage: 10 mg, UNK
  10. RISPERDAL [Concomitant]
     Dosage: 0.5 mg, UNK

REACTIONS (1)
  - Injection site pain [Unknown]
